FAERS Safety Report 5275400-0 (Version None)
Quarter: 2007Q1

REPORT INFORMATION
  Report Type: 
  Country: None (occurrence: None)
  Receive Date: 20070322
  Receipt Date: 20070322
  Transmission Date: 20070707
  Serious: Yes (Hospitalization)
  Sender: FDA-Public Use
  Company Number: None

PATIENT
  Age: 34 Year
  Sex: Male
  Weight: 68.2 kg

DRUGS (1)
  1. PHENYTOIN [Suspect]
     Dosage: 600 MG DAILY ORAL
     Route: 048

REACTIONS (5)
  - BALANCE DISORDER [None]
  - HEADACHE [None]
  - MOVEMENT DISORDER [None]
  - TREMOR [None]
  - VISION BLURRED [None]
